FAERS Safety Report 8063956-4 (Version None)
Quarter: 2012Q1

REPORT INFORMATION
  Report Type: 
  Country: None (occurrence: None)
  Receive Date: 20120123
  Receipt Date: 20120113
  Transmission Date: 20120608
  Serious: Yes (Hospitalization, Other)
  Sender: FDA-Public Use
  Company Number: PHHY2012BE003112

PATIENT
  Age: 8 Year
  Sex: Male

DRUGS (2)
  1. RISPERDAL [Concomitant]
     Dosage: 1 MG, UNK
  2. RITALIN [Suspect]

REACTIONS (4)
  - DYSPHONIA [None]
  - WITHDRAWAL SYNDROME [None]
  - TORTICOLLIS [None]
  - VIRAL INFECTION [None]
